FAERS Safety Report 14260825 (Version 12)
Quarter: 2024Q4

REPORT INFORMATION
  Report Type: Spontaneous
  Country: FR (occurrence: FR)
  Receive Date: 20171207
  Receipt Date: 20241226
  Transmission Date: 20250115
  Serious: Yes (Hospitalization, Other)
  Sender: SANOFI AVENTIS
  Company Number: FR-EMA-20150603-AUTODUP-439157

PATIENT
  Age: 34 Year
  Sex: Female

DRUGS (13)
  1. KETOPROFEN [Suspect]
     Active Substance: KETOPROFEN
     Indication: Analgesic therapy
     Dosage: 50 MG,QID TABLET
     Route: 048
  2. KETOPROFEN [Suspect]
     Active Substance: KETOPROFEN
     Dosage: 200 MG,QD
     Route: 048
  3. EPINEPHRINE [Suspect]
     Active Substance: EPINEPHRINE
     Indication: Anaesthesia
     Dosage: 15 ML OF LIDOCAINE 20MG/ML WITH ADRENALIN
     Route: 008
  4. ACETAMINOPHEN [Suspect]
     Active Substance: ACETAMINOPHEN
     Indication: Analgesic therapy
     Dosage: 1 G,QID
     Route: 048
  5. MORPHINE HYDROCHLORIDE [Suspect]
     Active Substance: MORPHINE HYDROCHLORIDE
     Indication: Analgesic therapy
     Dosage: 2 MG,QID
     Route: 008
  6. ASPIRIN [Suspect]
     Active Substance: ASPIRIN
     Indication: Product used for unknown indication
     Dosage: UNK
  7. LIDOCAINE [Suspect]
     Active Substance: LIDOCAINE
     Indication: Epidural analgesia
     Dosage: 300 MG,TOTAL
     Route: 008
  8. LIDOCAINE [Suspect]
     Active Substance: LIDOCAINE
     Dosage: 15 ML OF LIDOCAINE 20MG/ML WITH ADRENALIN
     Route: 008
  9. ENOXAPARIN SODIUM [Suspect]
     Active Substance: ENOXAPARIN SODIUM
     Indication: Thrombosis prophylaxis
     Dosage: DOSE DESCRIPTION : 40 MG,QD 1 TIMES A DAY
     Route: 058
  10. ROPIVACAINE [Suspect]
     Active Substance: ROPIVACAINE
     Indication: Epidural analgesia
     Dosage: 20 ML,TOTAL
     Route: 008
  11. ROPIVACAINE [Suspect]
     Active Substance: ROPIVACAINE
     Indication: Anaesthesia
     Dosage: 15 ML,UNK
  12. SUFENTANIL [Suspect]
     Active Substance: SUFENTANIL
     Indication: Epidural analgesia
     Dosage: 5 UG,TOTAL
     Route: 008
  13. NEFOPAM [Suspect]
     Active Substance: NEFOPAM
     Indication: Analgesic therapy
     Dosage: 40 MG,QID
     Route: 048

REACTIONS (9)
  - Peripheral nerve injury [Recovered/Resolved]
  - Gait disturbance [Recovered/Resolved]
  - Paraesthesia [Recovered/Resolved]
  - Neuropathy peripheral [Recovered/Resolved]
  - Nervous system disorder [Recovered/Resolved]
  - Foetal heart rate abnormal [Unknown]
  - Epistaxis [Unknown]
  - Spinal epidural haemorrhage [Recovered/Resolved]
  - Maternal exposure during pregnancy [Unknown]
